FAERS Safety Report 20137330 (Version 9)
Quarter: 2025Q3

REPORT INFORMATION
  Report Type: Spontaneous
  Country: CA (occurrence: CA)
  Receive Date: 20211201
  Receipt Date: 20250729
  Transmission Date: 20251020
  Serious: Yes (Death, Hospitalization, Other)
  Sender: PFIZER
  Company Number: CA-AMGEN-CANSP2021186984

PATIENT
  Age: 56 Year
  Sex: Female
  Weight: 70 kg

DRUGS (181)
  1. ENBREL [Suspect]
     Active Substance: ETANERCEPT
     Indication: Rheumatoid arthritis
     Dosage: 50 MILLIGRAM, QWK
     Route: 058
  2. ENBREL [Suspect]
     Active Substance: ETANERCEPT
     Dosage: 20 MG, WEEKLY
     Route: 058
  3. ENBREL [Suspect]
     Active Substance: ETANERCEPT
     Dosage: 20 MG, 1X/DAY
     Route: 058
  4. ENBREL [Suspect]
     Active Substance: ETANERCEPT
     Route: 058
  5. METHOTREXATE SODIUM [Suspect]
     Active Substance: METHOTREXATE SODIUM
     Indication: Rheumatoid arthritis
     Route: 058
  6. METHOTREXATE SODIUM [Suspect]
     Active Substance: METHOTREXATE SODIUM
     Dosage: 20 MILLIGRAM 1 EVERY 1 DAYS
     Route: 065
  7. METHOTREXATE SODIUM [Suspect]
     Active Substance: METHOTREXATE SODIUM
     Dosage: 1 EVERY 1 WEEK
     Route: 058
  8. METHOTREXATE SODIUM [Suspect]
     Active Substance: METHOTREXATE SODIUM
     Dosage: 25 MILLIGRAM, 1 EVERY 1 WEEK
     Route: 058
  9. METHOTREXATE SODIUM [Suspect]
     Active Substance: METHOTREXATE SODIUM
     Dosage: 20 MG, WEEKLY
     Route: 065
  10. METHOTREXATE SODIUM [Suspect]
     Active Substance: METHOTREXATE SODIUM
     Route: 048
  11. METHOTREXATE SODIUM [Suspect]
     Active Substance: METHOTREXATE SODIUM
     Route: 048
  12. METHOTREXATE SODIUM [Suspect]
     Active Substance: METHOTREXATE SODIUM
     Dosage: 15 MG, 1X/DAY
     Route: 048
  13. METHOTREXATE SODIUM [Suspect]
     Active Substance: METHOTREXATE SODIUM
     Route: 048
  14. CELECOXIB [Suspect]
     Active Substance: CELECOXIB
     Indication: Rheumatoid arthritis
     Route: 058
  15. CELECOXIB [Suspect]
     Active Substance: CELECOXIB
     Route: 048
  16. CELECOXIB [Suspect]
     Active Substance: CELECOXIB
     Route: 065
  17. CELECOXIB [Suspect]
     Active Substance: CELECOXIB
     Route: 065
  18. RITUXIMAB [Suspect]
     Active Substance: RITUXIMAB
     Indication: Rheumatoid arthritis
     Route: 065
  19. RITUXIMAB [Suspect]
     Active Substance: RITUXIMAB
     Route: 042
  20. RITUXIMAB [Suspect]
     Active Substance: RITUXIMAB
     Route: 041
  21. SULFASALAZINE [Suspect]
     Active Substance: SULFASALAZINE
     Indication: Rheumatoid arthritis
     Route: 065
  22. SULFASALAZINE [Suspect]
     Active Substance: SULFASALAZINE
     Dosage: 1000 MILLIGRAM 2 EVERY 1 DAYS
     Route: 048
  23. SULFASALAZINE [Suspect]
     Active Substance: SULFASALAZINE
     Route: 058
  24. SULFASALAZINE [Suspect]
     Active Substance: SULFASALAZINE
     Route: 058
  25. SULFASALAZINE [Suspect]
     Active Substance: SULFASALAZINE
     Route: 048
  26. SULFASALAZINE [Suspect]
     Active Substance: SULFASALAZINE
     Route: 058
  27. SULFASALAZINE [Suspect]
     Active Substance: SULFASALAZINE
     Route: 058
  28. SULFASALAZINE [Suspect]
     Active Substance: SULFASALAZINE
     Route: 058
  29. SULFASALAZINE [Suspect]
     Active Substance: SULFASALAZINE
     Route: 058
  30. DOXYCYCLINE HYCLATE [Suspect]
     Active Substance: DOXYCYCLINE HYCLATE
     Route: 065
  31. HYDROCORTISONE SODIUM SUCCINATE [Suspect]
     Active Substance: HYDROCORTISONE SODIUM SUCCINATE
     Route: 048
  32. HYDROCORTISONE SODIUM SUCCINATE [Suspect]
     Active Substance: HYDROCORTISONE SODIUM SUCCINATE
     Route: 058
  33. METHYLPREDNISOLONE SODIUM SUCCINATE [Suspect]
     Active Substance: METHYLPREDNISOLONE SODIUM SUCCINATE
     Route: 048
  34. XELJANZ [Suspect]
     Active Substance: TOFACITINIB CITRATE
     Dosage: 10 MG, 1X/DAY
     Route: 048
  35. XELJANZ [Suspect]
     Active Substance: TOFACITINIB CITRATE
     Route: 065
  36. TOFACITINIB [Suspect]
     Active Substance: TOFACITINIB
     Dosage: 10 MG, 1X/DAY
     Route: 065
  37. FOLIC ACID [Suspect]
     Active Substance: FOLIC ACID
     Indication: Rheumatoid arthritis
     Dosage: 1 MILLIGRAM
     Route: 065
  38. FOLIC ACID [Suspect]
     Active Substance: FOLIC ACID
     Route: 065
  39. FOLIC ACID [Suspect]
     Active Substance: FOLIC ACID
     Route: 065
  40. FOLIC ACID [Suspect]
     Active Substance: FOLIC ACID
     Route: 065
  41. ACTEMRA [Suspect]
     Active Substance: TOCILIZUMAB
     Indication: Rheumatoid arthritis
     Route: 065
  42. ARAVA [Suspect]
     Active Substance: LEFLUNOMIDE
     Indication: Rheumatoid arthritis
     Route: 048
  43. CETIRIZINE HYDROCHLORIDE [Suspect]
     Active Substance: CETIRIZINE HYDROCHLORIDE
     Indication: Rheumatoid arthritis
     Dosage: 10 MILLIGRAM
     Route: 048
  44. CETIRIZINE HYDROCHLORIDE [Suspect]
     Active Substance: CETIRIZINE HYDROCHLORIDE
     Route: 048
  45. CETIRIZINE HYDROCHLORIDE [Suspect]
     Active Substance: CETIRIZINE HYDROCHLORIDE
     Route: 065
  46. CETIRIZINE HYDROCHLORIDE [Suspect]
     Active Substance: CETIRIZINE HYDROCHLORIDE
     Route: 065
  47. CIMZIA [Suspect]
     Active Substance: CERTOLIZUMAB PEGOL
     Indication: Rheumatoid arthritis
     Dosage: 1 DF, 1X/DAY
     Route: 058
  48. CIMZIA [Suspect]
     Active Substance: CERTOLIZUMAB PEGOL
     Route: 058
  49. CORTISONE ACETATE [Suspect]
     Active Substance: CORTISONE ACETATE
     Indication: Rheumatoid arthritis
     Route: 061
  50. CORTISONE ACETATE [Suspect]
     Active Substance: CORTISONE ACETATE
     Route: 058
  51. COSENTYX [Suspect]
     Active Substance: SECUKINUMAB
     Indication: Psoriatic arthropathy
     Route: 065
  52. FOSAMAX [Suspect]
     Active Substance: ALENDRONATE SODIUM
     Indication: Rheumatoid arthritis
     Route: 065
  53. FOSAMAX [Suspect]
     Active Substance: ALENDRONATE SODIUM
     Route: 058
  54. HYDROXYCHLOROQUINE SULFATE [Suspect]
     Active Substance: HYDROXYCHLOROQUINE SULFATE
     Indication: Rheumatoid arthritis
     Dosage: 400 MILLIGRAM 1 EVERY 1 DAYS
     Route: 065
  55. HYDROXYCHLOROQUINE SULFATE [Suspect]
     Active Substance: HYDROXYCHLOROQUINE SULFATE
     Route: 065
  56. LEFLUNOMIDE [Suspect]
     Active Substance: LEFLUNOMIDE
     Indication: Rheumatoid arthritis
     Route: 065
  57. ORENCIA [Suspect]
     Active Substance: ABATACEPT
     Indication: Rheumatoid arthritis
     Route: 065
  58. ORENCIA [Suspect]
     Active Substance: ABATACEPT
     Route: 042
  59. ORENCIA [Suspect]
     Active Substance: ABATACEPT
     Route: 058
  60. ORENCIA [Suspect]
     Active Substance: ABATACEPT
     Route: 058
  61. ORENCIA [Suspect]
     Active Substance: ABATACEPT
     Route: 058
  62. ORENCIA [Suspect]
     Active Substance: ABATACEPT
     Route: 058
  63. ORENCIA [Suspect]
     Active Substance: ABATACEPT
     Dosage: 125 MG, 1X/DAY
     Route: 058
  64. ORENCIA [Suspect]
     Active Substance: ABATACEPT
     Dosage: 125 MG, WEEKLY
     Route: 058
  65. ORENCIA [Suspect]
     Active Substance: ABATACEPT
     Dosage: 18 MG, 1X/DAY
     Route: 058
  66. ORENCIA [Suspect]
     Active Substance: ABATACEPT
     Route: 058
  67. ORENCIA [Suspect]
     Active Substance: ABATACEPT
     Dosage: 17.88 MG, 1X/DAY
     Route: 058
  68. ORENCIA [Suspect]
     Active Substance: ABATACEPT
     Dosage: 17.86 MG, 1X/DAY
     Route: 058
  69. PHTHALYLSULFATHIAZOLE [Suspect]
     Active Substance: PHTHALYLSULFATHIAZOLE
     Indication: Rheumatoid arthritis
     Dosage: 2000 MG, 1X/DAY
     Route: 048
  70. PHTHALYLSULFATHIAZOLE [Suspect]
     Active Substance: PHTHALYLSULFATHIAZOLE
     Dosage: 1000 MG, 1X/DAY
     Route: 048
  71. PHTHALYLSULFATHIAZOLE [Suspect]
     Active Substance: PHTHALYLSULFATHIAZOLE
     Dosage: 400 MG, 1X/DAY
     Route: 065
  72. PHTHALYLSULFATHIAZOLE [Suspect]
     Active Substance: PHTHALYLSULFATHIAZOLE
     Route: 016
  73. PHTHALYLSULFATHIAZOLE [Suspect]
     Active Substance: PHTHALYLSULFATHIAZOLE
     Route: 048
  74. PHTHALYLSULFATHIAZOLE [Suspect]
     Active Substance: PHTHALYLSULFATHIAZOLE
     Dosage: 2000 MG, 1X/DAY
     Route: 058
  75. PLAQUENIL [Suspect]
     Active Substance: HYDROXYCHLOROQUINE SULFATE
     Route: 065
  76. PREDNISONE [Suspect]
     Active Substance: PREDNISONE
     Indication: Rheumatoid arthritis
     Route: 042
  77. PREDNISONE [Suspect]
     Active Substance: PREDNISONE
     Route: 048
  78. PREDNISONE [Suspect]
     Active Substance: PREDNISONE
     Route: 048
  79. PREDNISONE [Suspect]
     Active Substance: PREDNISONE
     Route: 048
  80. PREDNISONE [Suspect]
     Active Substance: PREDNISONE
     Route: 048
  81. PREDNISONE [Suspect]
     Active Substance: PREDNISONE
     Route: 048
  82. PSEUDOEPHEDRINE HYDROCHLORIDE [Suspect]
     Active Substance: PSEUDOEPHEDRINE HYDROCHLORIDE
     Indication: Rheumatoid arthritis
     Route: 065
  83. CETIRIZINE HYDROCHLORIDE [Suspect]
     Active Substance: CETIRIZINE HYDROCHLORIDE
     Indication: Rheumatoid arthritis
     Route: 065
  84. SIMPONI [Suspect]
     Active Substance: GOLIMUMAB
     Indication: Rheumatoid arthritis
     Route: 058
  85. SIMPONI [Suspect]
     Active Substance: GOLIMUMAB
     Route: 065
  86. HUMIRA [Suspect]
     Active Substance: ADALIMUMAB
     Indication: Rheumatoid arthritis
     Route: 058
  87. HUMIRA [Suspect]
     Active Substance: ADALIMUMAB
     Route: 065
  88. HUMIRA [Suspect]
     Active Substance: ADALIMUMAB
     Route: 058
  89. HUMIRA [Suspect]
     Active Substance: ADALIMUMAB
     Route: 058
  90. REMICADE [Suspect]
     Active Substance: INFLIXIMAB
     Indication: Rheumatoid arthritis
     Route: 042
  91. REMICADE [Suspect]
     Active Substance: INFLIXIMAB
     Route: 040
  92. REMICADE [Suspect]
     Active Substance: INFLIXIMAB
     Route: 042
  93. REMICADE [Suspect]
     Active Substance: INFLIXIMAB
     Route: 042
  94. REMICADE [Suspect]
     Active Substance: INFLIXIMAB
     Route: 042
  95. ADALIMUMAB [Suspect]
     Active Substance: ADALIMUMAB
     Route: 040
  96. ADALIMUMAB [Suspect]
     Active Substance: ADALIMUMAB
     Route: 058
  97. ADALIMUMAB [Suspect]
     Active Substance: ADALIMUMAB
     Route: 048
  98. ERELZI [Suspect]
     Active Substance: ETANERCEPT-SZZS
     Route: 058
  99. TOCILIZUMAB [Suspect]
     Active Substance: TOCILIZUMAB
     Route: 065
  100. TOCILIZUMAB [Suspect]
     Active Substance: TOCILIZUMAB
     Route: 048
  101. TOCILIZUMAB [Suspect]
     Active Substance: TOCILIZUMAB
     Dosage: 752 MG, WEEKLY
     Route: 065
  102. TOCILIZUMAB [Suspect]
     Active Substance: TOCILIZUMAB
     Route: 058
  103. TOCILIZUMAB [Suspect]
     Active Substance: TOCILIZUMAB
     Route: 040
  104. TOCILIZUMAB [Suspect]
     Active Substance: TOCILIZUMAB
     Route: 058
  105. TOCILIZUMAB [Suspect]
     Active Substance: TOCILIZUMAB
     Route: 040
  106. PREDNISONE [Suspect]
     Active Substance: PREDNISONE
     Indication: Rheumatoid arthritis
     Route: 065
  107. CETIRIZINE HYDROCHLORIDE AND PSEUDOEPHEDRINE HYDROCHLORIDE [Suspect]
     Active Substance: CETIRIZINE HYDROCHLORIDE\PSEUDOEPHEDRINE HYDROCHLORIDE
     Indication: Rheumatoid arthritis
     Route: 065
  108. HYRIMOZ [Suspect]
     Active Substance: ADALIMUMAB-ADAZ
     Route: 040
  109. HYRIMOZ [Suspect]
     Active Substance: ADALIMUMAB-ADAZ
     Route: 058
  110. ALENDRONATE SODIUM [Suspect]
     Active Substance: ALENDRONATE SODIUM
     Indication: Rheumatoid arthritis
     Route: 065
  111. DESOXIMETASONE [Suspect]
     Active Substance: DESOXIMETASONE
     Indication: Rheumatoid arthritis
     Route: 048
  112. DESOXIMETASONE [Suspect]
     Active Substance: DESOXIMETASONE
     Route: 058
  113. DESOXIMETASONE [Suspect]
     Active Substance: DESOXIMETASONE
     Route: 058
  114. DESOXIMETASONE [Suspect]
     Active Substance: DESOXIMETASONE
     Route: 048
  115. DICLOFENAC SODIUM [Suspect]
     Active Substance: DICLOFENAC SODIUM
     Route: 065
  116. LEVOCETIRIZINE DIHYDROCHLORIDE [Suspect]
     Active Substance: LEVOCETIRIZINE DIHYDROCHLORIDE
     Route: 065
  117. NAPROXEN [Suspect]
     Active Substance: NAPROXEN
     Route: 065
  118. NAPROXEN [Suspect]
     Active Substance: NAPROXEN
     Dosage: 1000 MG, 1X/DAY
     Route: 065
  119. NAPROXEN SODIUM [Suspect]
     Active Substance: NAPROXEN SODIUM
     Indication: Rheumatoid arthritis
     Dosage: 500.0 MILLIGRAM, 1 EVERY 12 HOUR
     Route: 065
  120. OTEZLA [Suspect]
     Active Substance: APREMILAST
     Dosage: 6 MG, 1X/DAY
     Route: 065
  121. OTEZLA [Suspect]
     Active Substance: APREMILAST
     Route: 048
  122. OTEZLA [Suspect]
     Active Substance: APREMILAST
     Dosage: 6 MG, 1X/DAY
     Route: 065
  123. OTEZLA [Suspect]
     Active Substance: APREMILAST
     Route: 048
  124. CALCIUM [Suspect]
     Active Substance: CALCIUM
     Route: 065
  125. ACETAMINOPHEN [Suspect]
     Active Substance: ACETAMINOPHEN
     Route: 065
  126. ACETAMINOPHEN [Suspect]
     Active Substance: ACETAMINOPHEN
     Route: 065
  127. APREMILAST [Suspect]
     Active Substance: APREMILAST
     Route: 065
  128. AZATHIOPRINE [Suspect]
     Active Substance: AZATHIOPRINE
     Route: 065
  129. CALCIUM CARBONATE [Suspect]
     Active Substance: CALCIUM CARBONATE
     Route: 016
  130. CALCIUM CITRATE [Suspect]
     Active Substance: CALCIUM CITRATE
     Route: 065
  131. CALCIUM GLUBIONATE [Suspect]
     Active Substance: CALCIUM GLUBIONATE
     Route: 065
  132. CHLORHEXIDINE GLUCONATE [Suspect]
     Active Substance: CHLORHEXIDINE GLUCONATE
     Route: 002
  133. ISOPROPANOLAMINE [Suspect]
     Active Substance: ISOPROPANOLAMINE
     Route: 065
  134. CLONIDINE HYDROCHLORIDE [Suspect]
     Active Substance: CLONIDINE HYDROCHLORIDE
     Route: 065
  135. DICLOFENAC POTASSIUM [Suspect]
     Active Substance: DICLOFENAC POTASSIUM
     Route: 065
  136. DICLOFENAC POTASSIUM [Suspect]
     Active Substance: DICLOFENAC POTASSIUM
     Dosage: 5 G, 1X/DAY
     Route: 065
  137. DICLOFENAC POTASSIUM [Suspect]
     Active Substance: DICLOFENAC POTASSIUM
     Route: 065
  138. DICLOFENAC POTASSIUM [Suspect]
     Active Substance: DICLOFENAC POTASSIUM
  139. HYDROXYCHLOROQUINE SULFATE [Suspect]
     Active Substance: HYDROXYCHLOROQUINE SULFATE
     Dosage: 40 MG, 1X/DAY
     Route: 048
  140. HYDROXYCHLOROQUINE SULFATE [Suspect]
     Active Substance: HYDROXYCHLOROQUINE SULFATE
     Dosage: 400 MG, 1X/DAY
     Route: 058
  141. HYDROXYCHLOROQUINE SULFATE [Suspect]
     Active Substance: HYDROXYCHLOROQUINE SULFATE
     Dosage: 5 MG, 1X/DAY
     Route: 048
  142. HYDROXYCHLOROQUINE SULFATE [Suspect]
     Active Substance: HYDROXYCHLOROQUINE SULFATE
     Route: 048
  143. ISOPROPYL ALCOHOL [Suspect]
     Active Substance: ISOPROPYL ALCOHOL
     Route: 048
  144. FRAMYCETIN SULFATE [Suspect]
     Active Substance: FRAMYCETIN SULFATE
     Route: 065
  145. DILTIAZEM HYDROCHLORIDE [Suspect]
     Active Substance: DILTIAZEM HYDROCHLORIDE
     Route: 040
  146. GRAMICIDIN [Suspect]
     Active Substance: GRAMICIDIN
     Route: 065
  147. DIPHENHYDRAMINE HYDROCHLORIDE [Suspect]
     Active Substance: DIPHENHYDRAMINE HYDROCHLORIDE
     Route: 065
  148. LYRICA [Suspect]
     Active Substance: PREGABALIN
     Route: 065
  149. MORPHINE SULFATE [Suspect]
     Active Substance: MORPHINE SULFATE
     Route: 065
  150. MESALAMINE [Suspect]
     Active Substance: MESALAMINE
     Route: 065
  151. VITAMIN D3 [Suspect]
     Active Substance: CHOLECALCIFEROL
     Route: 058
  152. VITAMIN D3 [Suspect]
     Active Substance: CHOLECALCIFEROL
     Route: 016
  153. VITAMIN D3 [Suspect]
     Active Substance: CHOLECALCIFEROL
  154. TYROTHRICIN [Suspect]
     Active Substance: TYROTHRICIN
     Route: 048
  155. TRIAMCINOLONE ACETONIDE [Suspect]
     Active Substance: TRIAMCINOLONE ACETONIDE
     Route: 035
  156. TRAMADOL HYDROCHLORIDE [Suspect]
     Active Substance: TRAMADOL HYDROCHLORIDE
     Route: 065
  157. MYCOPHENOLATE MOFETIL [Suspect]
     Active Substance: MYCOPHENOLATE MOFETIL
     Route: 065
  158. NITROFURAZONE [Suspect]
     Active Substance: NITROFURAZONE
     Route: 048
  159. NITROFURAZONE [Suspect]
     Active Substance: NITROFURAZONE
     Route: 048
  160. OXYCODONE [Suspect]
     Active Substance: OXYCODONE
     Route: 065
  161. OXYCODONE TEREPHTHALATE [Suspect]
     Active Substance: OXYCODONE TEREPHTHALATE
     Route: 065
  162. QUETIAPINE FUMARATE [Suspect]
     Active Substance: QUETIAPINE FUMARATE
     Route: 065
  163. SALICYLIC ACID [Suspect]
     Active Substance: SALICYLIC ACID
     Route: 065
  164. SODIUM FLUORIDE [Suspect]
     Active Substance: SODIUM FLUORIDE
     Route: 065
  165. STELARA [Suspect]
     Active Substance: USTEKINUMAB
     Route: 040
  166. SULFAMETHOXAZOLE AND TRIMETHOPRIM [Suspect]
     Active Substance: SULFAMETHOXAZOLE\TRIMETHOPRIM
     Route: 067
  167. THYMOL [Suspect]
     Active Substance: THYMOL
     Route: 048
  168. THYMOL [Suspect]
     Active Substance: THYMOL
     Route: 048
  169. PARA-AMINOSALICYLIC ACID [Suspect]
     Active Substance: AMINOSALICYLIC ACID
     Route: 065
  170. ENTYVIO [Suspect]
     Active Substance: VEDOLIZUMAB
  171. SULFATRIM [Suspect]
     Active Substance: SULFAMETHOXAZOLE\TRIMETHOPRIM
  172. APREMILAST [Suspect]
     Active Substance: APREMILAST
     Dosage: 6 MG, 1X/DAY
  173. CLONIDINE HYDROCHLORIDE [Suspect]
     Active Substance: CLONIDINE HYDROCHLORIDE
     Route: 065
  174. CALCIUM MALATE [Suspect]
     Active Substance: CALCIUM MALATE
  175. CALCIUM MALATE [Suspect]
     Active Substance: CALCIUM MALATE
  176. PREGABALIN [Suspect]
     Active Substance: PREGABALIN
  177. DICLOFENAC [Concomitant]
     Active Substance: DICLOFENAC
     Route: 065
  178. CALCIUM GLUCONATE [Concomitant]
     Active Substance: CALCIUM GLUCONATE
  179. SULFASALAZINE [Concomitant]
     Active Substance: SULFASALAZINE
     Route: 065
  180. PANTOPRAZOLE [Concomitant]
     Active Substance: PANTOPRAZOLE
     Route: 065
  181. NAPROSYN [Concomitant]
     Active Substance: NAPROXEN
     Route: 065

REACTIONS (59)
  - Type 2 diabetes mellitus [Fatal]
  - Upper respiratory tract infection [Fatal]
  - Urticaria [Fatal]
  - Visual impairment [Fatal]
  - Vomiting [Fatal]
  - Weight increased [Fatal]
  - Wheezing [Fatal]
  - Weight decreased [Fatal]
  - Wound [Fatal]
  - Wound infection [Fatal]
  - Prescribed underdose [Fatal]
  - Abdominal discomfort [Recovered/Resolved]
  - Adjustment disorder with depressed mood [Recovered/Resolved]
  - Alopecia [Recovered/Resolved]
  - Amnesia [Recovered/Resolved]
  - Delirium [Recovered/Resolved]
  - Diabetes mellitus [Recovered/Resolved]
  - Dislocation of vertebra [Recovered/Resolved]
  - Drug hypersensitivity [Recovered/Resolved]
  - Drug intolerance [Not Recovered/Not Resolved]
  - Drug tolerance decreased [Recovered/Resolved]
  - Gait disturbance [Recovered/Resolved]
  - Glossodynia [Not Recovered/Not Resolved]
  - Grip strength decreased [Recovered/Resolved]
  - Mobility decreased [Recovered/Resolved]
  - Muscular weakness [Recovered/Resolved]
  - Pain [Not Recovered/Not Resolved]
  - Pain in extremity [Recovered/Resolved]
  - Pemphigus [Not Recovered/Not Resolved]
  - Peripheral swelling [Recovered/Resolved]
  - Rheumatoid arthritis [Not Recovered/Not Resolved]
  - Seronegative arthritis [Recovered/Resolved]
  - Systemic lupus erythematosus [Not Recovered/Not Resolved]
  - Therapeutic product effect decreased [Recovered/Resolved]
  - Infection [Recovered/Resolved]
  - Drug ineffective [Not Recovered/Not Resolved]
  - Maternal exposure during pregnancy [Not Recovered/Not Resolved]
  - Contraindicated product administered [Not Recovered/Not Resolved]
  - Product use issue [Not Recovered/Not Resolved]
  - Arthropathy [Not Recovered/Not Resolved]
  - Hypersensitivity [Recovered/Resolved]
  - Pericarditis [Recovered/Resolved]
  - Treatment failure [Recovered/Resolved]
  - Fatigue [Not Recovered/Not Resolved]
  - Hand deformity [Not Recovered/Not Resolved]
  - Rash [Recovered/Resolved]
  - Swelling [Not Recovered/Not Resolved]
  - Condition aggravated [Not Recovered/Not Resolved]
  - Diarrhoea [Not Recovered/Not Resolved]
  - Dizziness [Not Recovered/Not Resolved]
  - Fibromyalgia [Not Recovered/Not Resolved]
  - Liver injury [Not Recovered/Not Resolved]
  - Nausea [Not Recovered/Not Resolved]
  - Oedema [Not Recovered/Not Resolved]
  - Prescribed overdose [Not Recovered/Not Resolved]
  - Psoriatic arthropathy [Not Recovered/Not Resolved]
  - Off label use [Not Recovered/Not Resolved]
  - Synovitis [Not Recovered/Not Resolved]
  - Underdose [Not Recovered/Not Resolved]
